FAERS Safety Report 4441804-9 (Version None)
Quarter: 2004Q3

REPORT INFORMATION
  Report Type: 
  Country: None (occurrence: None)
  Receive Date: 20040907
  Receipt Date: 20040901
  Transmission Date: 20050211
  Serious: Yes (Death, Life-Threatening)
  Sender: FDA-Public Use
  Company Number: PHNR2004AU01392

PATIENT
  Age: 0 Day
  Sex: Male

DRUGS (1)
  1. SYNTOMETRINE [Suspect]
     Route: 064

REACTIONS (6)
  - CONGENITAL BRAIN DAMAGE [None]
  - DRUG EXPOSURE DURING PREGNANCY [None]
  - DYSPNOEA [None]
  - IATROGENIC INJURY [None]
  - MEDICATION ERROR [None]
  - NEONATAL DISORDER [None]
